FAERS Safety Report 6764886-8 (Version None)
Quarter: 2010Q2

REPORT INFORMATION
  Report Type: 
  Country: None (occurrence: None)
  Receive Date: 20100609
  Receipt Date: 20100505
  Transmission Date: 20101027
  Serious: No
  Sender: FDA-Public Use
  Company Number: 2010012079

PATIENT
  Sex: Female

DRUGS (1)
  1. CHILDREN'S ZYRTEC ALLERGY [Suspect]
     Indication: HYPERSENSITIVITY
     Dosage: ORAL
     Route: 048
     Dates: start: 20100429, end: 20100503

REACTIONS (7)
  - DYSPNOEA [None]
  - EAR DISORDER [None]
  - HEADACHE [None]
  - PRODUCT QUALITY ISSUE [None]
  - SINUS DISORDER [None]
  - THROAT IRRITATION [None]
  - VOMITING [None]
